FAERS Safety Report 8357508-6 (Version None)
Quarter: 2012Q2

REPORT INFORMATION
  Report Type: 
  Country: None (occurrence: None)
  Receive Date: 20120511
  Receipt Date: 20120426
  Transmission Date: 20120825
  Serious: No
  Sender: FDA-Public Use
  Company Number: JP-2012-15002

PATIENT
  Age: 84 Year
  Sex: Male
  Weight: 37 kg

DRUGS (6)
  1. SAMSCA [Suspect]
     Indication: FLUID RETENTION
     Dosage: 15 MG MILLIGRAM(S), QAM, ORAL
     Route: 048
     Dates: start: 20120306
  2. FLOXAID (FUROSEMIDE) [Concomitant]
  3. ASPARA K (POTASSIUM ASPARTATE) [Concomitant]
  4. NEOPHAGAN (CYSTEINE HYDROCHLORIDE, ENOXOLONE, GLYCINE) [Concomitant]
  5. FULCALIQ 2 (MIXED AMINO) [Concomitant]
  6. NEOAMIYU (ALANINE, ARGININE, ASPARTIC ACID, GLUTAMIC ACID, GLYCINE, HI [Concomitant]

REACTIONS (6)
  - HYPERCHLORAEMIA [None]
  - BLOOD UREA INCREASED [None]
  - HAEMOGLOBIN DECREASED [None]
  - HYPERNATRAEMIA [None]
  - RED BLOOD CELL COUNT DECREASED [None]
  - URINE OUTPUT INCREASED [None]
